FAERS Safety Report 20327390 (Version 1)
Quarter: 2022Q1

REPORT INFORMATION
  Report Type: Spontaneous
  Country: IN (occurrence: IN)
  Receive Date: 20220112
  Receipt Date: 20220112
  Transmission Date: 20220424
  Serious: Yes (Death)
  Sender: FDA-Public Use
  Company Number: IN-PFIZER INC-2020254766

PATIENT
  Age: 80 Year
  Sex: Male

DRUGS (6)
  1. DACOMITINIB [Suspect]
     Active Substance: DACOMITINIB
     Dosage: 30 MG, 1X/DAY
     Route: 048
     Dates: start: 20200630, end: 20211115
  2. HYDROCORTISONE\HYDROCORTISONE ACETATE\HYDROCORTISONE CYPIONATE\HYDROCO [Concomitant]
     Active Substance: HYDROCORTISONE\HYDROCORTISONE ACETATE\HYDROCORTISONE CYPIONATE\HYDROCORTISONE SODIUM SUCCINATE
     Indication: Rash
     Dosage: UNK
  3. LOPERAMIDE [Concomitant]
     Active Substance: LOPERAMIDE
     Dosage: 1 DF, AS NEEDED
  4. FAMOTIDINE [Concomitant]
     Active Substance: FAMOTIDINE
     Dosage: 20 MG (BEFORE BREAKFAST)
  5. MEGESTROL ACETATE [Concomitant]
     Active Substance: MEGESTROL ACETATE
     Dosage: 160 MG, 2X/DAY
  6. ULTRACET [Concomitant]
     Active Substance: ACETAMINOPHEN\TRAMADOL HYDROCHLORIDE
     Dosage: 1 DF (TDS)

REACTIONS (1)
  - Death [Fatal]

NARRATIVE: CASE EVENT DATE: 20211115
